FAERS Safety Report 9439217 (Version 1)
Quarter: 2013Q3

REPORT INFORMATION
  Report Type: Spontaneous
  Country: FR (occurrence: FR)
  Receive Date: 20130804
  Receipt Date: 20130804
  Transmission Date: 20140515
  Serious: Yes (Hospitalization)
  Sender: FDA-Public Use
  Company Number: FR-JNJFOC-20130717801

PATIENT
  Age: 81 Year
  Sex: Female

DRUGS (15)
  1. XARELTO [Suspect]
     Indication: ATRIAL FIBRILLATION
     Route: 048
     Dates: start: 20130704, end: 20130704
  2. XARELTO [Suspect]
     Indication: CEREBROVASCULAR ACCIDENT PROPHYLAXIS
     Route: 048
     Dates: start: 20130704, end: 20130704
  3. LOVENOX [Suspect]
     Indication: ENDARTERECTOMY
     Route: 058
     Dates: start: 20130627, end: 20130704
  4. VOLTARENE [Suspect]
     Indication: PAIN
     Route: 048
     Dates: start: 20130704, end: 20130705
  5. CONTRAMAL [Concomitant]
     Route: 065
  6. MOTILIUM [Concomitant]
     Route: 065
  7. PARACETAMOL [Concomitant]
     Route: 065
  8. TAHOR [Concomitant]
     Route: 065
  9. LEVOTHYROX [Concomitant]
     Route: 065
  10. INEXIUM [Concomitant]
     Route: 065
  11. NOVORAPID [Concomitant]
     Route: 065
  12. RENITEC (ENALAPRIL) [Concomitant]
     Route: 065
  13. DIFFU K [Concomitant]
     Route: 065
  14. BISOPROLOL [Concomitant]
     Route: 065
  15. GLUCOPHAGE [Concomitant]
     Route: 065

REACTIONS (2)
  - Haematoma [Unknown]
  - Median nerve injury [Unknown]
